FAERS Safety Report 17762593 (Version 1)
Quarter: 2020Q2

REPORT INFORMATION
  Report Type: Spontaneous
  Country: US (occurrence: US)
  Receive Date: 20200508
  Receipt Date: 20200508
  Transmission Date: 20200714
  Serious: Yes (Other)
  Sender: FDA-Public Use
  Company Number: US-MALLINCKRODT-T202001984

PATIENT
  Age: 59 Year

DRUGS (2)
  1. INOMAX [Suspect]
     Active Substance: NITRIC OXIDE
     Indication: COVID-19
  2. INOMAX [Suspect]
     Active Substance: NITRIC OXIDE
     Indication: ACUTE RESPIRATORY DISTRESS SYNDROME
     Dosage: 25 PPM, INHALATION
     Route: 055
     Dates: start: 20200424, end: 20200502

REACTIONS (4)
  - Product use in unapproved indication [Unknown]
  - Bradycardia [Recovered/Resolved]
  - Product use issue [Unknown]
  - Oxygen saturation decreased [Recovered/Resolved]

NARRATIVE: CASE EVENT DATE: 20200424
